FAERS Safety Report 4691899-2 (Version None)
Quarter: 2005Q2

REPORT INFORMATION
  Report Type: 
  Country: None (occurrence: None)
  Receive Date: 20050614
  Receipt Date: 20050601
  Transmission Date: 20051028
  Serious: Yes (Hospitalization, Other)
  Sender: FDA-Public Use
  Company Number: 2005085112

PATIENT
  Age: 62 Year
  Sex: Female
  Weight: 117.9352 kg

DRUGS (10)
  1. CELEBREX [Suspect]
     Indication: RHEUMATOID ARTHRITIS
     Dosage: 200 MG (200 MG, 1 IN 1 D) ORAL
     Route: 048
  2. IBUPROFEN [Suspect]
     Indication: RHEUMATOID ARTHRITIS
  3. TYLENOL [Suspect]
     Indication: RHEUMATOID ARTHRITIS
  4. ASPIRIN [Suspect]
     Indication: RHEUMATOID ARTHRITIS
  5. ALEVE [Suspect]
     Indication: RHEUMATOID ARTHRITIS
  6. SYNTHROID [Concomitant]
  7. PROZAC [Concomitant]
  8. VITAMINS [Concomitant]
  9. DICLOFENAC SODIUM [Concomitant]
  10. DEPAKOTE [Concomitant]

REACTIONS (8)
  - ABDOMINAL PAIN UPPER [None]
  - ARTHRALGIA [None]
  - BODY HEIGHT DECREASED [None]
  - CEREBRAL HAEMORRHAGE [None]
  - CONVULSION [None]
  - DIFFICULTY IN WALKING [None]
  - DRUG EFFECT DECREASED [None]
  - RHEUMATOID FACTOR INCREASED [None]
